FAERS Safety Report 25933757 (Version 1)
Quarter: 2025Q4

REPORT INFORMATION
  Report Type: Spontaneous
  Country: CA (occurrence: CA)
  Receive Date: 20251017
  Receipt Date: 20251017
  Transmission Date: 20260117
  Serious: Yes (Other)
  Sender: APOTEX
  Company Number: CA-APOTEX-2025AP031071

PATIENT
  Age: 68 Year
  Sex: Female

DRUGS (2)
  1. WARFARIN [Suspect]
     Active Substance: WARFARIN
     Indication: Anticoagulant therapy
     Dosage: UNK
     Route: 065
  2. LETROZOLE [Suspect]
     Active Substance: LETROZOLE
     Indication: Breast cancer female
     Dosage: UNK
     Route: 065

REACTIONS (2)
  - Deep vein thrombosis postoperative [Unknown]
  - Adverse drug reaction [Unknown]
